FAERS Safety Report 6113443-5 (Version None)
Quarter: 2009Q1

REPORT INFORMATION
  Report Type: 
  Country: None (occurrence: None)
  Receive Date: 20090312
  Receipt Date: 20090303
  Transmission Date: 20090719
  Serious: Yes (Disabling)
  Sender: FDA-Public Use
  Company Number: ES-AVENTIS-200912156GDDC

PATIENT
  Age: 81 Year
  Sex: Female

DRUGS (8)
  1. LANTUS [Suspect]
     Indication: DIABETES MELLITUS
     Route: 058
     Dates: start: 20081001, end: 20081201
  2. LANTUS [Suspect]
     Route: 058
     Dates: start: 20081201
  3. LANTUS [Suspect]
     Route: 058
  4. LANTUS [Suspect]
     Route: 058
  5. REPAGLINIDE [Concomitant]
  6. DIAMICRON [Concomitant]
  7. SIMVASTATIN [Concomitant]
  8. IDAPTAN [Concomitant]

REACTIONS (3)
  - GAIT DISTURBANCE [None]
  - MOBILITY DECREASED [None]
  - MYALGIA [None]
